FAERS Safety Report 4795138-3 (Version None)
Quarter: 2005Q4

REPORT INFORMATION
  Report Type: 
  Country: None (occurrence: None)
  Receive Date: 20051006
  Receipt Date: 20050921
  Transmission Date: 20060501
  Serious: Yes (Life-Threatening, Other)
  Sender: FDA-Public Use
  Company Number: 2005EU002116

PATIENT
  Sex: Female

DRUGS (8)
  1. PROTOPIC [Suspect]
     Indication: DERMATITIS ATOPIC
     Dosage: 0.10%, UNKNOWN/D, TOPICAL
     Route: 061
     Dates: start: 20030924, end: 20050310
  2. RAMIPRIL [Concomitant]
  3. PROVAS COMP (VALSARTAN) [Concomitant]
  4. FLUTICASON /  SALMETEROL [Concomitant]
  5. IBUPROFEN [Concomitant]
  6. NORFLOXACIN [Concomitant]
  7. COTRIMOXAZOLE FORTE (SULFAMETHOXAZOLE, TRIMETHOPRIM) [Concomitant]
  8. ASPIRIN [Concomitant]

REACTIONS (6)
  - ASTHMA [None]
  - BLOOD PRESSURE INCREASED [None]
  - DIFFUSE LARGE B-CELL LYMPHOMA [None]
  - HERPES SIMPLEX [None]
  - METASTASES TO LYMPH NODES [None]
  - PRURITUS [None]
